FAERS Safety Report 6567379-6 (Version None)
Quarter: 2010Q1

REPORT INFORMATION
  Report Type: 
  Country: None (occurrence: None)
  Receive Date: 20100202
  Receipt Date: 20100122
  Transmission Date: 20100710
  Serious: Yes (Death, Other)
  Sender: FDA-Public Use
  Company Number: US-BAXTER-2009BH019523

PATIENT
  Age: 60 Year
  Sex: Male

DRUGS (3)
  1. HEPARIN SODIUM INJECTION [Suspect]
     Indication: THROMBOSIS PROPHYLAXIS
     Route: 042
  2. LEVAQUIN [Concomitant]
     Indication: DRUG USE FOR UNKNOWN INDICATION
     Route: 065
  3. WARFARIN SODIUM [Concomitant]
     Indication: DRUG USE FOR UNKNOWN INDICATION
     Route: 065

REACTIONS (21)
  - ABASIA [None]
  - ABDOMINAL DISCOMFORT [None]
  - BONE PAIN [None]
  - CHEST PAIN [None]
  - CHRONIC OBSTRUCTIVE PULMONARY DISEASE [None]
  - DECREASED APPETITE [None]
  - DYSARTHRIA [None]
  - DYSPNOEA [None]
  - EXTREMITY CONTRACTURE [None]
  - HAEMORRHAGE [None]
  - INJECTION SITE SWELLING [None]
  - MUSCULOSKELETAL STIFFNESS [None]
  - OEDEMA PERIPHERAL [None]
  - PRURITUS [None]
  - RASH [None]
  - RENAL FAILURE CHRONIC [None]
  - SKIN DISCOLOURATION [None]
  - SKIN INDURATION [None]
  - SWELLING FACE [None]
  - VISUAL IMPAIRMENT [None]
  - VOMITING [None]
